FAERS Safety Report 9639018 (Version 1)
Quarter: 2013Q4

REPORT INFORMATION
  Report Type: Spontaneous
  Country: TH (occurrence: None)
  Receive Date: 20131018
  Receipt Date: 20131018
  Transmission Date: 20140711
  Serious: Yes (Other)
  Sender: FDA-Public Use
  Company Number: C-13-098

PATIENT
  Sex: Female
  Weight: 1.42 kg

DRUGS (1)
  1. INDOMETHACIN [Suspect]
     Indication: PREMATURE LABOUR

REACTIONS (4)
  - Maternal drugs affecting foetus [None]
  - Caesarean section [None]
  - Hydrops foetalis [None]
  - Cardiac failure [None]
